FAERS Safety Report 5195242-4 (Version None)
Quarter: 2006Q4

REPORT INFORMATION
  Report Type: 
  Country: None (occurrence: None)
  Receive Date: 20061130
  Receipt Date: 20060627
  Transmission Date: 20070319
  Serious: Yes (Disabling, Other)
  Sender: FDA-Public Use
  Company Number: WAES 0606USA05107

PATIENT
  Age: 70 Year
  Sex: Female

DRUGS (4)
  1. FOSAMAX [Suspect]
     Indication: OSTEOPOROSIS
     Dosage: 70 MG/WKY/PO
     Route: 048
     Dates: start: 20060217, end: 20060313
  2. CRESTOR [Concomitant]
  3. ZOLOFT [Concomitant]
  4. ASPIRIN [Concomitant]

REACTIONS (1)
  - RASH [None]
